FAERS Safety Report 26069983 (Version 1)
Quarter: 2025Q4

REPORT INFORMATION
  Report Type: Report from Study
  Country: EU (occurrence: EU)
  Receive Date: 20251120
  Receipt Date: 20251120
  Transmission Date: 20260118
  Serious: Yes (Other)
  Sender: ROCHE
  Company Number: EU-ROCHE-10000431367

PATIENT
  Age: 90 Year
  Sex: Male

DRUGS (2)
  1. FARICIMAB [Suspect]
     Active Substance: FARICIMAB
     Indication: Neovascular age-related macular degeneration
     Route: 050
  2. ASPIRIN [Concomitant]
     Active Substance: ASPIRIN
     Indication: Hypertension
     Route: 048
     Dates: start: 2024

REACTIONS (2)
  - Intra-ocular injection complication [Recovered/Resolved]
  - Corneal disorder [Recovered/Resolved]

NARRATIVE: CASE EVENT DATE: 20240709
